FAERS Safety Report 23444132 (Version 2)
Quarter: 2024Q1

REPORT INFORMATION
  Report Type: Spontaneous
  Country: CA (occurrence: CA)
  Receive Date: 20240125
  Receipt Date: 20240219
  Transmission Date: 20240410
  Serious: Yes (Hospitalization, Other)
  Sender: FDA-Public Use
  Company Number: CA-FreseniusKabi-FK202401421

PATIENT
  Age: 31 Year
  Sex: Female

DRUGS (4)
  1. OXYTOCIN [Suspect]
     Active Substance: OXYTOCIN
     Indication: Labour induction
     Dosage: DOSAGE FORM: SOLUTION INTRAMUSCULAR?TRANSPLACENTAL (TRA )
  2. CERVIDIL [Suspect]
     Active Substance: DINOPROSTONE
     Indication: Labour induction
     Dosage: FORM OF ADMIN. INSERT?ROUTE OF ADMIN. TRANSPLACENTAL ( TRA )?2 REGIMENS
     Route: 064
  3. CERVIDIL [Suspect]
     Active Substance: DINOPROSTONE
     Dosage: FORM OF ADMIN. INSERT?ROUTE OF ADMIN. VAGINAL
     Route: 067
  4. LABETALOL [Concomitant]
     Active Substance: LABETALOL\LABETALOL HYDROCHLORIDE
     Indication: Product used for unknown indication
     Dosage: FORM OF ADMIN. NOT SPECIFIED

REACTIONS (4)
  - Drug ineffective [Unknown]
  - Resuscitation [Unknown]
  - Off label use [Unknown]
  - Prescribed overdose [Unknown]
